FAERS Safety Report 8374533-X (Version None)
Quarter: 2012Q2

REPORT INFORMATION
  Report Type: 
  Country: None (occurrence: None)
  Receive Date: 20120521
  Receipt Date: 20120508
  Transmission Date: 20120825
  Serious: No
  Sender: FDA-Public Use
  Company Number: US-ASTRAZENECA-2010SE60157

PATIENT
  Age: 52 Year
  Sex: Female

DRUGS (4)
  1. OMEPRAZOLE [Suspect]
     Route: 048
  2. UNSPECIFIED MEDICATION [Suspect]
     Route: 065
  3. PRILOSEC OTC [Suspect]
     Route: 048
  4. NEXIUM [Suspect]
     Indication: GASTROOESOPHAGEAL REFLUX DISEASE
     Route: 048

REACTIONS (4)
  - CONDITION AGGRAVATED [None]
  - ADVERSE EVENT [None]
  - DRUG INEFFECTIVE [None]
  - INTENTIONAL DRUG MISUSE [None]
